FAERS Safety Report 4488348-6 (Version None)
Quarter: 2004Q4

REPORT INFORMATION
  Report Type: 
  Country: None (occurrence: None)
  Receive Date: 20041026
  Receipt Date: 20041015
  Transmission Date: 20050328
  Serious: Yes (Hospitalization)
  Sender: FDA-Public Use
  Company Number: 176210

PATIENT
  Age: 75 Year
  Sex: Male
  Weight: 124.7392 kg

DRUGS (11)
  1. AVONEX [Suspect]
     Indication: MULTIPLE SCLEROSIS
     Dosage: 30 MCG QW IM
     Route: 030
     Dates: start: 19990101
  2. NEURONTIN [Concomitant]
  3. PROVIGIL [Concomitant]
  4. KLONOPIN [Concomitant]
  5. ZOLOFT [Concomitant]
  6. MUSCLE RELAXER [Concomitant]
  7. DETROL [Concomitant]
  8. SYNTHROID [Concomitant]
  9. PRILOSEC [Concomitant]
  10. HYDROCODONE [Concomitant]
  11. ZOCOR [Concomitant]

REACTIONS (6)
  - APHASIA [None]
  - BALANCE DISORDER [None]
  - BONE PAIN [None]
  - EYE PAIN [None]
  - FALL [None]
  - GAIT DISTURBANCE [None]
